FAERS Safety Report 21831960 (Version 2)
Quarter: 2023Q1

REPORT INFORMATION
  Report Type: Spontaneous
  Country: BR (occurrence: BR)
  Receive Date: 20230106
  Receipt Date: 20230110
  Transmission Date: 20230418
  Serious: Yes (Hospitalization, Other)
  Sender: FDA-Public Use
  Company Number: BR-ABBVIE-4259046

PATIENT
  Age: 61 Year
  Sex: Male

DRUGS (2)
  1. VENETOCLAX [Suspect]
     Active Substance: VENETOCLAX
     Indication: Chronic lymphocytic leukaemia
     Route: 065
  2. RITUXIMAB [Concomitant]
     Active Substance: RITUXIMAB
     Indication: Chronic lymphocytic leukaemia
     Route: 065

REACTIONS (18)
  - Dialysis [Recovered/Resolved]
  - Tumour lysis syndrome [Recovered/Resolved]
  - Haemoglobin decreased [Recovering/Resolving]
  - Electrocardiogram T wave peaked [Recovering/Resolving]
  - Vision blurred [Recovered/Resolved]
  - Hyperphosphataemia [Recovering/Resolving]
  - Dyspepsia [Recovered/Resolved]
  - Renal injury [Recovered/Resolved]
  - Hyperkalaemia [Recovering/Resolving]
  - Abdominal discomfort [Recovered/Resolved]
  - Cytoreductive surgery [Recovering/Resolving]
  - Platelet count decreased [Recovering/Resolving]
  - Hyperhidrosis [Recovered/Resolved]
  - Hypotension [Recovered/Resolved]
  - Hypocalcaemia [Recovering/Resolving]
  - Hyperuricaemia [Recovering/Resolving]
  - Abdominal pain [Recovered/Resolved]
  - Peripheral coldness [Recovered/Resolved]
